FAERS Safety Report 25371716 (Version 1)
Quarter: 2025Q2

REPORT INFORMATION
  Report Type: Spontaneous
  Country: US (occurrence: US)
  Receive Date: 20250529
  Receipt Date: 20250529
  Transmission Date: 20250717
  Serious: No
  Sender: UCB
  Company Number: US-UCBSA-2025014647

PATIENT
  Sex: Male

DRUGS (1)
  1. ZILBRYSQ [Suspect]
     Active Substance: ZILUCOPLAN
     Indication: Product used for unknown indication
     Dates: start: 20250218

REACTIONS (6)
  - Abnormal faeces [Unknown]
  - Skin odour abnormal [Unknown]
  - Urine odour abnormal [Unknown]
  - Breath odour [Unknown]
  - Dyspnoea [Unknown]
  - Middle insomnia [Unknown]
